FAERS Safety Report 20603599 (Version 1)
Quarter: 2022Q1

REPORT INFORMATION
  Report Type: Spontaneous
  Country: US (occurrence: None)
  Receive Date: 20220316
  Receipt Date: 20220316
  Transmission Date: 20220424
  Serious: Yes (Hospitalization)
  Sender: FDA-Public Use
  Company Number: None

PATIENT
  Sex: Female

DRUGS (8)
  1. MYCOPHENOLIC ACID [Suspect]
     Active Substance: MYCOPHENOLIC ACID
     Indication: Renal transplant
     Dosage: FREQUENCY : AS DIRECTED;?
     Route: 048
     Dates: start: 20180824
  2. CARVEDILOL [Concomitant]
     Active Substance: CARVEDILOL
  3. CELLCEPT [Concomitant]
     Active Substance: MYCOPHENOLATE MOFETIL
  4. CLONIDINE TAB [Concomitant]
  5. LASIX TAB 40MG [Concomitant]
  6. LEVEMIR INJ FLEXTOUC [Concomitant]
  7. LEVOTHYROXIN TAB [Concomitant]
  8. PREDNISONE [Concomitant]
     Active Substance: PREDNISONE

REACTIONS (1)
  - Hospitalisation [None]
